FAERS Safety Report 7213155-0 (Version None)
Quarter: 2011Q1

REPORT INFORMATION
  Report Type: 
  Country: None (occurrence: None)
  Receive Date: 20110106
  Receipt Date: 20081015
  Transmission Date: 20110831
  Serious: Yes (Life-Threatening, Hospitalization, Other)
  Sender: FDA-Public Use
  Company Number: PHHY2008AU20284

PATIENT
  Sex: Male

DRUGS (3)
  1. EXJADE [Suspect]
     Indication: CHELATION THERAPY
  2. EXJADE [Suspect]
     Indication: HAEMOSIDEROSIS
     Dosage: 1.2 G/DAY
     Dates: start: 20080626, end: 20080809
  3. ZOMETA [Suspect]
     Indication: MULTIPLE MYELOMA
     Dosage: 3.5 MG, QMO
     Dates: start: 20030101, end: 20080101

REACTIONS (9)
  - TUBULOINTERSTITIAL NEPHRITIS [None]
  - BLOOD UREA INCREASED [None]
  - BLOOD ALBUMIN DECREASED [None]
  - DIALYSIS [None]
  - BLOOD CALCIUM DECREASED [None]
  - GLOMERULAR FILTRATION RATE DECREASED [None]
  - RENAL FAILURE ACUTE [None]
  - BLOOD CREATININE INCREASED [None]
  - BLOOD POTASSIUM DECREASED [None]
